FAERS Safety Report 5995462-2 (Version None)
Quarter: 2008Q4

REPORT INFORMATION
  Report Type: 
  Country: None (occurrence: None)
  Receive Date: 20081212
  Receipt Date: 20080930
  Transmission Date: 20090506
  Serious: No
  Sender: FDA-Public Use
  Company Number: US-ABBOTT-08P-163-0479004-00

PATIENT
  Sex: Female
  Weight: 80.812 kg

DRUGS (8)
  1. HUMIRA [Suspect]
     Indication: PSORIATIC ARTHROPATHY
     Route: 050
     Dates: start: 20070101, end: 20080801
  2. DULOXETINE HYDROCHLORIDE [Concomitant]
     Indication: DEPRESSION
     Route: 048
  3. METFORMIN HCL [Concomitant]
     Indication: DIABETES MELLITUS
     Route: 048
  4. GLYBURIDE [Concomitant]
     Indication: DIABETES MELLITUS
     Route: 048
  5. METOPROLOL [Concomitant]
     Indication: BLOOD PRESSURE
     Route: 048
  6. HYDROCHLOROTHIAZIDE [Concomitant]
     Indication: BLOOD PRESSURE
     Route: 048
  7. TOCOPHERYL ACETATE [Concomitant]
     Indication: VITAMIN SUPPLEMENTATION
     Route: 048
  8. GARLIQUE [Concomitant]
     Indication: VITAMIN SUPPLEMENTATION
     Route: 048

REACTIONS (5)
  - ARTHRALGIA [None]
  - BLOOD CHOLESTEROL INCREASED [None]
  - BLOOD TRIGLYCERIDES INCREASED [None]
  - JOINT STIFFNESS [None]
  - PSORIASIS [None]
